FAERS Safety Report 9322548 (Version 2)
Quarter: 2013Q2

REPORT INFORMATION
  Report Type: Spontaneous
  Country: IT (occurrence: IT)
  Receive Date: 20130531
  Receipt Date: 20130626
  Transmission Date: 20140414
  Serious: Yes (Hospitalization)
  Sender: FDA-Public Use
  Company Number: IT-ASTRAZENECA-2013SE36411

PATIENT
  Age: 17838 Day
  Sex: Male

DRUGS (4)
  1. SEROQUEL PROLONG [Suspect]
     Route: 048
     Dates: start: 20130220, end: 20130220
  2. SERTRALINE [Concomitant]
     Route: 048
  3. FLURAZEPAM [Concomitant]
     Route: 048
  4. CARBOLITHIUM [Concomitant]
     Route: 048

REACTIONS (10)
  - Overdose [Unknown]
  - Confusional state [Recovering/Resolving]
  - Sopor [Recovering/Resolving]
  - Facial asymmetry [Recovering/Resolving]
  - Bradyphrenia [Recovering/Resolving]
  - Self injurious behaviour [Recovering/Resolving]
  - Asthenia [Recovering/Resolving]
  - Dysarthria [Recovering/Resolving]
  - Hypotension [Recovering/Resolving]
  - Asthenia [Recovering/Resolving]
